FAERS Safety Report 5685732-X (Version None)
Quarter: 2008Q1

REPORT INFORMATION
  Report Type: 
  Country: None (occurrence: None)
  Receive Date: 20080328
  Receipt Date: 20070921
  Transmission Date: 20080703
  Serious: No
  Sender: FDA-Public Use
  Company Number: US-BAYER-US-2007-036049

PATIENT
  Age: 45 Year
  Sex: Female
  Weight: 73 kg

DRUGS (3)
  1. MIRENA [Suspect]
     Indication: VAGINAL HAEMORRHAGE
     Route: 015
     Dates: start: 20061101, end: 20070801
  2. THYROID TAB [Concomitant]
     Indication: HYPOTHYROIDISM
  3. CLARITIN [Concomitant]

REACTIONS (5)
  - AMENORRHOEA [None]
  - OVARIAN CYST [None]
  - PAIN [None]
  - PROCEDURAL PAIN [None]
  - WEIGHT INCREASED [None]
